FAERS Safety Report 7280031-7 (Version None)
Quarter: 2011Q1

REPORT INFORMATION
  Report Type: 
  Country: None (occurrence: None)
  Receive Date: 20110125
  Receipt Date: 20110110
  Transmission Date: 20110831
  Serious: Yes (Death, Other)
  Sender: FDA-Public Use
  Company Number: 010613

PATIENT
  Sex: Male

DRUGS (13)
  1. TENOFOVIR DISOPROXIL FUMARATE [Concomitant]
  2. SAMSCA [Suspect]
     Indication: HYPONATRAEMIA
     Dosage: 15MG, DAILY, ORAL
     Route: 048
  3. CITALOPRAM [Concomitant]
  4. CIPROFLOXACIN [Concomitant]
  5. ABACAVIR SULFATE/LAMIVUDINE [Concomitant]
  6. ERGOCALCIFEROL [Concomitant]
  7. NYSTATIN [Concomitant]
  8. DAPSONE [Concomitant]
  9. OMEPRAZOLE [Concomitant]
  10. RALTEGRAVIR [Concomitant]
  11. URSODIOL [Concomitant]
  12. LACTULOSE [Concomitant]
  13. MICONAZOLE NITRATE [Concomitant]

REACTIONS (5)
  - REFUSAL OF TREATMENT BY PATIENT [None]
  - ILEUS [None]
  - RENAL FAILURE [None]
  - HEPATORENAL SYNDROME [None]
  - PERITONITIS BACTERIAL [None]
